FAERS Safety Report 10494268 (Version 1)
Quarter: 2014Q4

REPORT INFORMATION
  Report Type: Spontaneous
  Country: US (occurrence: None)
  Receive Date: 20141001
  Receipt Date: 20141001
  Transmission Date: 20150528
  Serious: Yes (Death, Hospitalization, Other)
  Sender: FDA-Public Use
  Company Number: US-ZYDUS-005052

PATIENT
  Age: 8 Month
  Sex: Male

DRUGS (1)
  1. LANSOPRAZOLE. [Suspect]
     Active Substance: LANSOPRAZOLE
     Indication: GASTROOESOPHAGEAL REFLUX DISEASE
     Dosage: 7.50-MG-2.00 TIMES PER-1.0DAYS

REACTIONS (6)
  - Cardiopulmonary failure [None]
  - Retroperitoneal haemorrhage [None]
  - Clostridium difficile colitis [None]
  - Haemodynamic instability [None]
  - Ascites [None]
  - General physical health deterioration [None]
